FAERS Safety Report 15367284 (Version 1)
Quarter: 2018Q4

REPORT INFORMATION
  Report Type: Spontaneous
  Country: AU (occurrence: AU)
  Receive Date: 20180910
  Receipt Date: 20180910
  Transmission Date: 20190204
  Serious: Yes (Hospitalization)
  Sender: FDA-Public Use
  Company Number: AU-SA-2018SA245776

PATIENT
  Sex: Female

DRUGS (1)
  1. AVAPRO-HCT TABS 300 MG/25 MG [Suspect]
     Active Substance: HYDROCHLOROTHIAZIDE\IRBESARTAN
     Dosage: UNK
     Route: 065

REACTIONS (2)
  - Aneurysm [Unknown]
  - Cerebral haemorrhage [Unknown]
